FAERS Safety Report 16308299 (Version 1)
Quarter: 2019Q2

REPORT INFORMATION
  Report Type: Report from Study
  Country: MX (occurrence: MX)
  Receive Date: 20190514
  Receipt Date: 20190514
  Transmission Date: 20190711
  Serious: Yes (Other)
  Sender: FDA-Public Use
  Company Number: MX-ROCHE-2316961

PATIENT
  Sex: Female
  Weight: 63.5 kg

DRUGS (2)
  1. METHOTREXATE. [Concomitant]
     Active Substance: METHOTREXATE
     Indication: RHEUMATOID ARTHRITIS
  2. ROACTEMRA [Suspect]
     Active Substance: TOCILIZUMAB
     Indication: RHEUMATOID ARTHRITIS
     Dosage: VIAL: 200 MG/10 ML AND 80 MG
     Route: 042
     Dates: start: 201503

REACTIONS (4)
  - Arthralgia [Unknown]
  - Pain [Unknown]
  - Hernia [Unknown]
  - Urinary tract infection [Unknown]
